FAERS Safety Report 7556317 (Version 2)
Quarter: 2013Q1

REPORT INFORMATION
  Report Type: Spontaneous
  Country: US (occurrence: US)
  Receive Date: 20100827
  Receipt Date: 20130218
  Transmission Date: 20140127
  Serious: Yes (Hospitalization)
  Sender: FDA-Public Use
  Company Number: US-BAYER-201031535NA

PATIENT
  Age: 47 Year
  Sex: Female
  Weight: 83.9 kg

DRUGS (1)
  1. YAZ [Suspect]
     Dosage: UNK
     Route: 048
     Dates: start: 200708, end: 201007

REACTIONS (4)
  - Cholecystitis chronic [None]
  - Cholecystectomy [None]
  - Pain [None]
  - Injury [None]
